FAERS Safety Report 12140319 (Version 7)
Quarter: 2017Q1

REPORT INFORMATION
  Report Type: Spontaneous
  Country: US (occurrence: US)
  Receive Date: 20160303
  Receipt Date: 20170308
  Transmission Date: 20170428
  Serious: Yes (Hospitalization)
  Sender: FDA-Public Use
  Company Number: US-PFIZER INC-2016115760

PATIENT
  Age: 58 Year
  Sex: Female

DRUGS (17)
  1. CENTRUM SILVER [Concomitant]
     Active Substance: MINERALS\VITAMINS
     Dosage: 1 DF, IN THE AM
  2. LYRICA [Suspect]
     Active Substance: PREGABALIN
     Indication: NEURALGIA
  3. SYMBICORT [Concomitant]
     Active Substance: BUDESONIDE\FORMOTEROL FUMARATE DIHYDRATE
     Dosage: UNK UNK, 2X/DAY (BUDESONIDE 160, FORMOTEROL FUMARATE 4.5, 1 PUFF)
  4. NASONEX [Concomitant]
     Active Substance: MOMETASONE FUROATE
     Dosage: UNK, AS NEEDED (50 MCG /ACT 2 PUFFS 1 DAILY AS NEEDED)
  5. LYRICA [Suspect]
     Active Substance: PREGABALIN
     Indication: NERVOUS SYSTEM DISORDER
     Dosage: 300 MG, 2X/DAY
     Route: 048
     Dates: end: 201512
  6. LYRICA [Suspect]
     Active Substance: PREGABALIN
     Indication: PAIN
  7. PROAIR HFA [Concomitant]
     Active Substance: ALBUTEROL SULFATE
     Dosage: UNK, AS NEEDED (108 MCG/ACT AERS 2 PUFFS Q 3-4 HRS PRN)
  8. PERCOCET [Concomitant]
     Active Substance: ACETAMINOPHEN\OXYCODONE HYDROCHLORIDE
     Dosage: UNK, AS NEEDED (OXYCODONE HYDROCHLORIDE, 75 MG, PARACETAMOL, 325 MG, 1 TABLET 2-3 TIMES DAILY)
  9. CARBIDOPA LEVODOPA [Concomitant]
     Active Substance: CARBIDOPA\LEVODOPA
     Dosage: UNK, CARBIDOPA 25 MG, LEVODOPA 100 MG; 2 TABS TWICE PER DAY AND THREE PILLS AT BED TIME
  10. SPIRIVA [Concomitant]
     Active Substance: TIOTROPIUM BROMIDE MONOHYDRATE
     Dosage: 18 UG, 1X/DAY
     Route: 055
  11. OXYCONTIN [Concomitant]
     Active Substance: OXYCODONE HYDROCHLORIDE
     Indication: PAIN
     Dosage: 10 MG, 3X/DAY (1 TABLET EVERY 8 HRS )
  12. PAROXETINE HCL [Concomitant]
     Active Substance: PAROXETINE HYDROCHLORIDE
     Dosage: 40 MG, DAILY
  13. VAGIFEM [Concomitant]
     Active Substance: ESTRADIOL
     Dosage: 10 UG, 2X 3 PER WEEK
     Route: 067
  14. LYRICA [Suspect]
     Active Substance: PREGABALIN
     Indication: PARAESTHESIA
  15. IRON [Concomitant]
     Active Substance: IRON
     Dosage: 65 MG, 2X/DAY
  16. FERROUS SULFATE. [Concomitant]
     Active Substance: FERROUS SULFATE
     Dosage: 325 MG, UNK
  17. LISINOPRIL HCTZ [Concomitant]
     Active Substance: HYDROCHLOROTHIAZIDE\LISINOPRIL
     Dosage: UNK, DAILY (HYDROCHLOROTHIAZIDE 20 MG, LISINOPRIL 25 MG)

REACTIONS (5)
  - Pain [Recovering/Resolving]
  - Dyspnoea [Recovering/Resolving]
  - Gait disturbance [Recovering/Resolving]
  - Activities of daily living impaired [Recovering/Resolving]
  - Insomnia [Recovering/Resolving]
